FAERS Safety Report 6698083-1 (Version None)
Quarter: 2010Q2

REPORT INFORMATION
  Report Type: 
  Country: None (occurrence: None)
  Receive Date: 20100426
  Receipt Date: 20100426
  Transmission Date: 20101027
  Serious: Yes (Other)
  Sender: FDA-Public Use
  Company Number: None

PATIENT
  Sex: Female
  Weight: 65.7716 kg

DRUGS (1)
  1. WELCHOL [Suspect]
     Indication: BLOOD CHOLESTEROL INCREASED
     Dosage: 6 TABLETS ONCE A DAY PO
     Route: 048
     Dates: start: 20100412, end: 20100418

REACTIONS (3)
  - INSOMNIA [None]
  - MIGRAINE WITH AURA [None]
  - VISION BLURRED [None]
